FAERS Safety Report 9097680 (Version 1)
Quarter: 2013Q1

REPORT INFORMATION
  Report Type: Spontaneous
  Country: NL (occurrence: NL)
  Receive Date: 20130212
  Receipt Date: 20130212
  Transmission Date: 20140127
  Serious: Yes (Hospitalization)
  Sender: FDA-Public Use
  Company Number: PHHY2013NL003695

PATIENT
  Age: 76 Year
  Sex: Female

DRUGS (5)
  1. ZOMETA [Suspect]
     Indication: BREAST CANCER METASTATIC
     Dosage: 4 MG/100 ML,PER 28 DAYS
     Route: 042
  2. ZOMETA [Suspect]
     Dosage: 4 MG/100 ML,PER 28 DAYS
     Route: 042
     Dates: start: 20120601
  3. ZOMETA [Suspect]
     Dosage: 4 MG/100 ML,PER 28 DAYS
     Route: 042
     Dates: start: 20121215
  4. ZOMETA [Suspect]
     Dosage: 4 MG/100 ML,1 X PER 28 DAYS
     Route: 042
     Dates: start: 20130111
  5. ZOMETA [Suspect]
     Dosage: 4 MG/100 ML,1 X PER 28 DAYS
     Route: 042
     Dates: start: 20130206

REACTIONS (5)
  - Walking disability [Not Recovered/Not Resolved]
  - Haemoglobin decreased [Unknown]
  - Pallor [Not Recovered/Not Resolved]
  - Decreased appetite [Not Recovered/Not Resolved]
  - Bone pain [Not Recovered/Not Resolved]
